FAERS Safety Report 15291070 (Version 1)
Quarter: 2018Q3

REPORT INFORMATION
  Report Type: Spontaneous
  Country: IR (occurrence: IR)
  Receive Date: 20180817
  Receipt Date: 20180817
  Transmission Date: 20181010
  Serious: Yes (Life-Threatening, Hospitalization, Other)
  Sender: FDA-Public Use
  Company Number: IR-JNJFOC-20180816254

PATIENT
  Age: 32 Year
  Sex: Male

DRUGS (1)
  1. TRAMADOL HYDROCHLORIDE. [Suspect]
     Active Substance: TRAMADOL HYDROCHLORIDE
     Indication: HEADACHE
     Route: 048

REACTIONS (7)
  - Toxicity to various agents [Unknown]
  - Acidosis [Unknown]
  - Generalised tonic-clonic seizure [Recovered/Resolved]
  - Joint dislocation [Recovering/Resolving]
  - Loss of consciousness [Recovered/Resolved]
  - Upper limb fracture [Recovering/Resolving]
  - Injury [Recovering/Resolving]
